FAERS Safety Report 8736170 (Version 3)
Quarter: 2012Q4

REPORT INFORMATION
  Report Type: 
  Country: US (occurrence: US)
  Receive Date: 20120822
  Receipt Date: 20120911
  Transmission Date: 20130627
  Serious: Yes (Other)
  Sender: FDA-Public Use
  Company Number: US-UCBSA-063750

PATIENT
  Age: 51 Year
  Sex: Female
  Weight: 83.91 kg

DRUGS (1)
  1. CIMZIA [Suspect]
     Indication: CROHN^S DISEASE
     Dosage: STRENGTH: 200 MG, WEEK 0, 2, 4
     Route: 058
     Dates: start: 20120721, end: 20120819

REACTIONS (2)
  - Headache [Recovered/Resolved]
  - Nausea [Recovered/Resolved]
